FAERS Safety Report 7563711-5 (Version None)
Quarter: 2011Q2

REPORT INFORMATION
  Report Type: 
  Country: None (occurrence: None)
  Receive Date: 20110622
  Receipt Date: 20110616
  Transmission Date: 20111010
  Serious: Yes (Death, Hospitalization, Other)
  Sender: FDA-Public Use
  Company Number: PHHY2011JP53006

PATIENT
  Age: 62 Year
  Sex: Male

DRUGS (4)
  1. IRINOTECAN HYDROCHLORIDE [Suspect]
     Indication: SMALL CELL CARCINOMA
     Dosage: UNK
     Dates: start: 20080301
  2. GEMCITABINE [Suspect]
     Dosage: 1000 MG/M2, UNK
  3. ETOPOSIDE [Suspect]
     Indication: SMALL CELL CARCINOMA
     Dosage: UNK
     Dates: start: 20070101
  4. CISPLATIN [Suspect]
     Indication: SMALL CELL CARCINOMA
     Dosage: UNK
     Dates: start: 20070101

REACTIONS (8)
  - MULTI-ORGAN FAILURE [None]
  - ILEUS [None]
  - PANCREATIC MASS [None]
  - DRUG INEFFECTIVE [None]
  - NEOPLASM PROGRESSION [None]
  - FATIGUE [None]
  - METASTASIS [None]
  - LYMPHADENOPATHY [None]
